FAERS Safety Report 5316716-9 (Version None)
Quarter: 2007Q2

REPORT INFORMATION
  Report Type: 
  Country: None (occurrence: None)
  Receive Date: 20070504
  Receipt Date: 20070426
  Transmission Date: 20071010
  Serious: Yes (Life-Threatening)
  Sender: FDA-Public Use
  Company Number: FR-BAYER-200710296BFR

PATIENT
  Age: 40 Year
  Sex: Female
  Weight: 59 kg

DRUGS (5)
  1. CIPROFLOXACIN HCL [Suspect]
     Indication: URINARY TRACT INFECTION
     Dosage: TOTAL DAILY DOSE: 1 G  UNIT DOSE: 500 MG
     Route: 048
     Dates: start: 20061221, end: 20061222
  2. BRICANYL [Concomitant]
     Indication: UNEVALUABLE EVENT
  3. ATROVENT [Concomitant]
     Indication: UNEVALUABLE EVENT
  4. LANTUS [Concomitant]
     Indication: UNEVALUABLE EVENT
  5. NOVORAPID [Concomitant]
     Indication: UNEVALUABLE EVENT

REACTIONS (3)
  - DELIRIUM [None]
  - HALLUCINATION [None]
  - SUICIDAL IDEATION [None]
